FAERS Safety Report 9816960 (Version 2)
Quarter: 2014Q1

REPORT INFORMATION
  Report Type: Spontaneous
  Country: US (occurrence: US)
  Receive Date: 20140114
  Receipt Date: 20140224
  Transmission Date: 20141002
  Serious: Yes (Other)
  Sender: FDA-Public Use
  Company Number: US-GLAXOSMITHKLINE-A1056250A

PATIENT
  Sex: Male

DRUGS (7)
  1. INFLUENZA VACCINE UNSPECIFIED [Suspect]
     Indication: PROPHYLAXIS
     Route: 065
     Dates: start: 20100924, end: 20100924
  2. ADVAIR [Suspect]
     Indication: PULMONARY CONGESTION
     Dosage: 1PUFF AS REQUIRED
     Route: 055
     Dates: start: 20131115
  3. PNEUMONIA VACCINE (NON-GSK) [Suspect]
     Indication: PROPHYLAXIS
     Route: 065
     Dates: start: 20100924, end: 20100924
  4. METFORMIN [Concomitant]
  5. VITAMIN D [Concomitant]
  6. MULTIVITAMIN [Concomitant]
  7. NEXIUM [Concomitant]

REACTIONS (9)
  - Diabetes mellitus [Not Recovered/Not Resolved]
  - Serum sickness [Not Recovered/Not Resolved]
  - Pulmonary congestion [Unknown]
  - Glucose tolerance impaired [Not Recovered/Not Resolved]
  - Blood glucose increased [Not Recovered/Not Resolved]
  - Sputum increased [Unknown]
  - Cough [Unknown]
  - Poor quality sleep [Recovered/Resolved]
  - Drug administration error [Unknown]
